FAERS Safety Report 5736442-1 (Version None)
Quarter: 2008Q2

REPORT INFORMATION
  Report Type: 
  Country: None (occurrence: None)
  Receive Date: 20080513
  Receipt Date: 20080512
  Transmission Date: 20081010
  Serious: Yes (Hospitalization)
  Sender: FDA-Public Use
  Company Number: B0519795A

PATIENT
  Age: 81 Year
  Sex: Female
  Weight: 34 kg

DRUGS (8)
  1. PAXIL [Suspect]
     Indication: DEPRESSION
     Dosage: 10MG PER DAY
     Route: 048
     Dates: start: 20060929, end: 20061005
  2. UNKNOWN DRUG [Concomitant]
     Route: 048
  3. AMLODIN [Concomitant]
     Route: 048
  4. ENALAPRIL MALEATE [Concomitant]
     Route: 048
  5. FAMOTIDINE [Concomitant]
     Route: 065
  6. THYRADIN [Concomitant]
     Route: 048
  7. STARSIS [Concomitant]
     Route: 048
  8. GANATON [Concomitant]
     Route: 048

REACTIONS (2)
  - ALTERED STATE OF CONSCIOUSNESS [None]
  - HYPONATRAEMIA [None]
